FAERS Safety Report 16869075 (Version 2)
Quarter: 2019Q3

REPORT INFORMATION
  Report Type: Spontaneous
  Country: DE (occurrence: DE)
  Receive Date: 20190930
  Receipt Date: 20190930
  Transmission Date: 20191005
  Serious: Yes (Other)
  Sender: FDA-Public Use
  Company Number: PHHY2019DE225307

PATIENT

DRUGS (10)
  1. TAMOXIFEN [Suspect]
     Active Substance: TAMOXIFEN
     Indication: BREAST CANCER METASTATIC
     Dosage: UNK
     Route: 065
     Dates: start: 2002, end: 2005
  2. METHOTREXATE. [Suspect]
     Active Substance: METHOTREXATE
     Indication: BREAST CANCER METASTATIC
     Dosage: UNK (6 CYCLES)
     Route: 065
  3. CYCLOPHOSPHAMIDE. [Suspect]
     Active Substance: CYCLOPHOSPHAMIDE
     Indication: BREAST CANCER METASTATIC
     Dosage: UNK (6 CYCLES)
     Route: 065
  4. DOXORUBICIN [Suspect]
     Active Substance: DOXORUBICIN
     Indication: BREAST CANCER METASTATIC
     Dosage: UNK (6 CYCLES)
     Route: 065
  5. FLUOROURACIL. [Suspect]
     Active Substance: FLUOROURACIL
     Indication: BREAST CANCER METASTATIC
     Dosage: UNK (6 CYCLES)
     Route: 065
  6. ZOLADEX [Concomitant]
     Active Substance: GOSERELIN ACETATE
     Indication: BREAST CANCER METASTATIC
     Dosage: UNK
     Route: 065
  7. FEMARA [Suspect]
     Active Substance: LETROZOLE
     Indication: BREAST CANCER METASTATIC
     Dosage: UNK
     Route: 065
     Dates: start: 2006, end: 2008
  8. CYCLOPHOSPHAMIDE. [Suspect]
     Active Substance: CYCLOPHOSPHAMIDE
     Dosage: UNK (6 CYCLES)
     Route: 065
  9. DOCETAXEL. [Suspect]
     Active Substance: DOCETAXEL
     Indication: BREAST CANCER METASTATIC
     Dosage: UNK (6 CYCLES)
     Route: 065
  10. TAMOXIFEN [Suspect]
     Active Substance: TAMOXIFEN
     Dosage: UNK
     Route: 065
     Dates: start: 2009, end: 2010

REACTIONS (16)
  - Metastases to bone [Unknown]
  - Intestinal metastasis [Unknown]
  - Breast cancer metastatic [Unknown]
  - Hydronephrosis [Unknown]
  - Duodenal stenosis [Unknown]
  - Vomiting [Unknown]
  - PIK3CA-activated mutation [Unknown]
  - Metastases to peritoneum [Unknown]
  - Metastases to liver [Unknown]
  - Malignant neoplasm progression [Unknown]
  - Intestinal congestion [Unknown]
  - Toxoplasmosis [Unknown]
  - Urinary retention [Unknown]
  - Metastases to lymph nodes [Unknown]
  - Metastases to bladder [Unknown]
  - Carcinoembryonic antigen increased [Unknown]

NARRATIVE: CASE EVENT DATE: 201507
